FAERS Safety Report 9925756 (Version 1)
Quarter: 2014Q1

REPORT INFORMATION
  Report Type: Spontaneous
  Country: US (occurrence: None)
  Receive Date: 20140221
  Receipt Date: 20140221
  Transmission Date: 20141002
  Serious: Yes (Life-Threatening)
  Sender: FDA-Public Use
  Company Number: 001670103A

PATIENT
  Age: 49 Year
  Sex: Female

DRUGS (2)
  1. MEANINGFUL BEAUTY ANTIOXDANT DAY CREME WITH SPF 20 [Suspect]
     Dosage: DERMAL
     Dates: start: 20140124
  2. MEANINGFUL BEAUTY SKIN BRIGHTENING DECOLLETE NECK TREATMENT SPF.15 [Suspect]
     Dosage: DERMAL
     Dates: start: 20140124

REACTIONS (4)
  - Erythema [None]
  - Swelling face [None]
  - Eye swelling [None]
  - Dyspnoea [None]
